FAERS Safety Report 9743524 (Version 1)
Quarter: 2013Q4

REPORT INFORMATION
  Report Type: Spontaneous
  Country: US (occurrence: US)
  Receive Date: 20131210
  Receipt Date: 20131210
  Transmission Date: 20140711
  Serious: No
  Sender: FDA-Public Use
  Company Number: US-TEVA-384424USA

PATIENT
  Age: 23 Year
  Sex: Female
  Weight: 77.63 kg

DRUGS (3)
  1. PARAGARD 380A [Suspect]
     Indication: CONTRACEPTION
     Dates: start: 20121214, end: 20130131
  2. PRENATAL VITAMINS [Concomitant]
     Indication: POSTPARTUM STATE
  3. IBUPROFEN [Concomitant]
     Indication: POSTPARTUM STATE
     Dosage: 1600 MILLIGRAM DAILY;
     Dates: start: 20121028

REACTIONS (3)
  - Pelvic pain [Not Recovered/Not Resolved]
  - Metrorrhagia [Unknown]
  - Device expulsion [Recovered/Resolved]
